FAERS Safety Report 4350120-5 (Version None)
Quarter: 2004Q2

REPORT INFORMATION
  Report Type: 
  Country: None (occurrence: None)
  Receive Date: 20040429
  Receipt Date: 20040419
  Transmission Date: 20050107
  Serious: Yes (Other)
  Sender: FDA-Public Use
  Company Number: US-ROCHE-364946

PATIENT
  Age: 50 Year
  Sex: Male
  Weight: 88.5 kg

DRUGS (3)
  1. PEGASYS [Suspect]
     Indication: HEPATITIS C
     Route: 058
     Dates: start: 20040115
  2. COPEGUS [Suspect]
     Indication: HEPATITIS C
     Route: 048
     Dates: start: 20040115
  3. ACIPHEX [Concomitant]
     Dosage: DAILY.
     Route: 048

REACTIONS (5)
  - FALL [None]
  - HYPOAESTHESIA [None]
  - IMPAIRED HEALING [None]
  - THERMAL BURN [None]
  - WRIST FRACTURE [None]
